FAERS Safety Report 6457322-2 (Version None)
Quarter: 2009Q4

REPORT INFORMATION
  Report Type: 
  Country: None (occurrence: None)
  Receive Date: 20091125
  Receipt Date: 20091119
  Transmission Date: 20100525
  Serious: Yes (Hospitalization)
  Sender: FDA-Public Use
  Company Number: GXKR2009JP11881

PATIENT
  Sex: Male
  Weight: 37.1 kg

DRUGS (11)
  1. RIFAMPICIN [Suspect]
     Indication: PULMONARY TUBERCULOSIS
     Dosage: 450 MG/DAY
     Route: 048
     Dates: start: 20090918, end: 20091008
  2. ISCOTIN [Suspect]
     Indication: PULMONARY TUBERCULOSIS
     Dosage: 300 MG/DAY
     Route: 048
     Dates: start: 20090918, end: 20091008
  3. EBUTOL [Suspect]
     Indication: PULMONARY TUBERCULOSIS
     Dosage: 750 MG/DAY
     Route: 048
     Dates: start: 20090918, end: 20091008
  4. EBUTOL [Suspect]
     Dosage: UNK
     Route: 048
     Dates: start: 20091102
  5. PYRAMIDE [Concomitant]
     Indication: TUBERCULOSIS
     Dosage: 1.2 G, QD
     Route: 048
     Dates: start: 20090918, end: 20091008
  6. PYDOXAL [Concomitant]
     Indication: NEUROPATHY PERIPHERAL
     Dosage: 30 MG, QD
     Route: 048
     Dates: start: 20090918, end: 20091008
  7. NU-LOTAN [Concomitant]
     Indication: HYPERTENSION
     Dosage: 25 MG, QD
     Route: 048
     Dates: start: 20090917, end: 20091008
  8. MILMAG [Concomitant]
     Indication: CONSTIPATION
     Dosage: 1050 MG, QD
     Route: 048
     Dates: start: 20090924, end: 20091008
  9. SENNOSIDE A+B [Concomitant]
     Indication: CONSTIPATION
     Dosage: 24 MG, QD
     Route: 048
     Dates: start: 20090925, end: 20091008
  10. NOVORAPID [Concomitant]
     Indication: DIABETES MELLITUS
     Dosage: 9600 U, QD
     Route: 030
     Dates: start: 20090912
  11. LANTUS [Concomitant]
     Indication: DIABETES MELLITUS
     Dosage: 10000 U, QD
     Route: 030
     Dates: start: 20090915

REACTIONS (2)
  - HYPOXIA [None]
  - INTERSTITIAL LUNG DISEASE [None]
